FAERS Safety Report 10149510 (Version 4)
Quarter: 2021Q1

REPORT INFORMATION
  Report Type: Report from Study
  Country: US (occurrence: US)
  Receive Date: 20140502
  Receipt Date: 20210107
  Transmission Date: 20210419
  Serious: Yes (Hospitalization, Other)
  Sender: FDA-Public Use
  Company Number: US-SA-2014SA055775

PATIENT
  Age: 29 Year
  Sex: Female
  Weight: 122 kg

DRUGS (3)
  1. AGALSIDASE BETA [Suspect]
     Active Substance: AGALSIDASE BETA
     Indication: FABRY^S DISEASE
     Dosage: .6 MG/KG,QOW
     Route: 042
     Dates: start: 20071031
  2. AGALSIDASE BETA [Suspect]
     Active Substance: AGALSIDASE BETA
     Dosage: 10 MG, QOW
     Route: 042
     Dates: start: 20190802
  3. AGALSIDASE BETA [Suspect]
     Active Substance: AGALSIDASE BETA
     Dosage: 140 MG, QOW
     Route: 042
     Dates: start: 20190802

REACTIONS (14)
  - Pulmonary thrombosis [Unknown]
  - Hypoaesthesia [Unknown]
  - Fall [Unknown]
  - Thrombosis [Unknown]
  - Cerebral calcification [Unknown]
  - Sinus arrhythmia [Unknown]
  - Loss of consciousness [Recovered/Resolved]
  - Tension headache [Unknown]
  - Multiple sclerosis [Unknown]
  - Migraine [Unknown]
  - Heart rate decreased [Not Recovered/Not Resolved]
  - Lethargy [Unknown]
  - Muscle spasms [Unknown]
  - Hysterectomy [Unknown]

NARRATIVE: CASE EVENT DATE: 20140419
